FAERS Safety Report 4629394-9 (Version None)
Quarter: 2005Q2

REPORT INFORMATION
  Report Type: 
  Country: None (occurrence: None)
  Receive Date: 20050405
  Receipt Date: 20050323
  Transmission Date: 20051028
  Serious: Yes (Hospitalization)
  Sender: FDA-Public Use
  Company Number: 2005AP01926

PATIENT
  Age: 55 Year
  Sex: Male

DRUGS (7)
  1. DIPRIVAN [Suspect]
     Indication: SEDATION
     Dates: start: 20050313, end: 20050315
  2. MINOCYCLINE HCL [Concomitant]
  3. CARBENIN [Concomitant]
  4. DIFLUCAN [Concomitant]
  5. FOY [Concomitant]
  6. FRAGMIN [Concomitant]
  7. ELASPOL [Concomitant]

REACTIONS (4)
  - BLOOD CREATINE PHOSPHOKINASE INCREASED [None]
  - HAEMODIALYSIS [None]
  - MYOGLOBINURIA [None]
  - RENAL IMPAIRMENT [None]
